FAERS Safety Report 4692104-3 (Version None)
Quarter: 2005Q2

REPORT INFORMATION
  Report Type: 
  Country: None (occurrence: None)
  Receive Date: 20050614
  Receipt Date: 20050601
  Transmission Date: 20051028
  Serious: Yes (Other)
  Sender: FDA-Public Use
  Company Number: 2005082435

PATIENT
  Age: 14 Year
  Sex: Male
  Weight: 58.9676 kg

DRUGS (1)
  1. SUDAFED 12 HOUR [Suspect]
     Indication: OVERDOSE
     Dosage: 8 TABLETS, ONCE ORAL
     Route: 048
     Dates: start: 20050601, end: 20050601

REACTIONS (4)
  - ABNORMAL BEHAVIOUR [None]
  - AMBLYOPIA [None]
  - OVERDOSE [None]
  - VERTIGO [None]
